FAERS Safety Report 8572319-4 (Version None)
Quarter: 2012Q2

REPORT INFORMATION
  Report Type: 
  Country: None (occurrence: None)
  Receive Date: 20120418
  Receipt Date: 20100817
  Transmission Date: 20120825
  Serious: Yes (Other)
  Sender: FDA-Public Use
  Company Number: PHEH2010US03518

PATIENT
  Sex: Female

DRUGS (6)
  1. PREMPRO [Concomitant]
  2. OGEN [Suspect]
  3. ESTRADERM [Suspect]
     Dosage: TRANSDERMAL
     Route: 062
  4. PREMARIN [Suspect]
  5. PROVERA [Suspect]
  6. CLIMARA [Suspect]

REACTIONS (9)
  - BREAST CANCER [None]
  - GENERAL PHYSICAL HEALTH DETERIORATION [None]
  - BREAST RECONSTRUCTION [None]
  - ANXIETY [None]
  - MASTECTOMY [None]
  - DEFORMITY [None]
  - PAIN [None]
  - BREAST LUMP REMOVAL [None]
  - EXPLORATORY OPERATION [None]
